FAERS Safety Report 20771572 (Version 5)
Quarter: 2022Q2

REPORT INFORMATION
  Report Type: Spontaneous
  Country: US (occurrence: US)
  Receive Date: 20220430
  Receipt Date: 20220606
  Transmission Date: 20220721
  Serious: Yes (Hospitalization, Disabling, Other)
  Sender: FDA-Public Use
  Company Number: NVSC2022US097929

PATIENT
  Age: 19 Year
  Sex: Male
  Weight: 139 kg

DRUGS (1)
  1. KYMRIAH [Suspect]
     Active Substance: TISAGENLECLEUCEL
     Indication: Acute lymphocytic leukaemia
     Dosage: UNK UNK, ONCE/SINGLE
     Route: 042
     Dates: start: 20220405

REACTIONS (4)
  - Headache [Recovered/Resolved]
  - Nervous system disorder [Recovering/Resolving]
  - Malignant neoplasm progression [Recovered/Resolved with Sequelae]
  - Acute lymphocytic leukaemia recurrent [Recovered/Resolved with Sequelae]

NARRATIVE: CASE EVENT DATE: 20220425
